FAERS Safety Report 5286880-9 (Version None)
Quarter: 2007Q1

REPORT INFORMATION
  Report Type: 
  Country: None (occurrence: None)
  Receive Date: 20070329
  Receipt Date: 20070316
  Transmission Date: 20070707
  Serious: Yes (Other)
  Sender: FDA-Public Use
  Company Number: 2007SP005027

PATIENT

DRUGS (3)
  1. CLARITIN [Suspect]
     Indication: DRUG USE FOR UNKNOWN INDICATION
     Dosage: 1 DF, ONCE; PO
     Route: 048
     Dates: start: 20070316
  2. MARJUANA [Concomitant]
  3. ALCOHOL [Concomitant]

REACTIONS (4)
  - ALCOHOL USE [None]
  - DRUG ABUSER [None]
  - HEAD INJURY [None]
  - LOSS OF CONSCIOUSNESS [None]
